FAERS Safety Report 5873346-8 (Version None)
Quarter: 2008Q3

REPORT INFORMATION
  Report Type: 
  Country: None (occurrence: None)
  Receive Date: 20080829
  Receipt Date: 20071106
  Transmission Date: 20090109
  Serious: Yes (Hospitalization)
  Sender: FDA-Public Use
  Company Number: 2007-01078FE

PATIENT
  Age: 69 Year
  Sex: Male

DRUGS (4)
  1. CRH (CRH /00928701/) (CORTICOLIBERIN HUMAN) [Suspect]
     Indication: DIAGNOSTIC PROCEDURE
     Dosage: 100 MCG ONCE IV
     Route: 042
  2. GHRH (GHRH) (SOMATORELIN ACETATE) [Suspect]
     Indication: DIAGNOSTIC PROCEDURE
     Dosage: IV
     Route: 042
  3. TRH (TRH) (PROTIRELIN) [Suspect]
     Indication: DIAGNOSTIC PROCEDURE
     Dosage: 200 MCG ONCE IV
     Route: 042
  4. GNRH () (GONADORELIN) [Suspect]
     Indication: DIAGNOSTIC PROCEDURE
     Dosage: 100 MCG ONCE IV
     Route: 042

REACTIONS (4)
  - BEDRIDDEN [None]
  - BODY TEMPERATURE INCREASED [None]
  - ORTHOSTATIC HYPOTENSION [None]
  - PITUITARY HAEMORRHAGE [None]
